FAERS Safety Report 21598823 (Version 1)
Quarter: 2022Q4

REPORT INFORMATION
  Report Type: Spontaneous
  Country: US (occurrence: US)
  Receive Date: 20221115
  Receipt Date: 20221115
  Transmission Date: 20230113
  Serious: No
  Sender: FDA-Public Use
  Company Number: US-SANOFI-01360334

PATIENT
  Sex: Female

DRUGS (2)
  1. LEMTRADA [Suspect]
     Active Substance: ALEMTUZUMAB
     Indication: Multiple sclerosis
     Dosage: 12 MG/D (TITRATED ON FURTHER VISITS) NA
  2. LEMTRADA [Suspect]
     Active Substance: ALEMTUZUMAB
     Dosage: 12 MG, QD

REACTIONS (4)
  - Hyperhidrosis [Unknown]
  - Urinary tract infection [Unknown]
  - Illness [Unknown]
  - Chromaturia [Unknown]

NARRATIVE: CASE EVENT DATE: 20221001
